FAERS Safety Report 6774987-6 (Version None)
Quarter: 2010Q2

REPORT INFORMATION
  Report Type: 
  Country: None (occurrence: None)
  Receive Date: 20100617
  Receipt Date: 20100615
  Transmission Date: 20101027
  Serious: Yes (Hospitalization, Disabling)
  Sender: FDA-Public Use
  Company Number: A0833414A

PATIENT
  Age: 60 Year
  Sex: Female
  Weight: 76.4 kg

DRUGS (6)
  1. AVANDIA [Suspect]
     Indication: DIABETES MELLITUS
     Dosage: 4MG PER DAY
     Route: 048
     Dates: start: 19990101, end: 20080601
  2. SYNTHROID [Concomitant]
  3. PAXIL CR [Concomitant]
  4. ZOCOR [Concomitant]
  5. NASONEX [Concomitant]
  6. GLYBURIDE [Concomitant]

REACTIONS (6)
  - CARDIAC FAILURE CONGESTIVE [None]
  - CAROTID ARTERY STENOSIS [None]
  - CORONARY ARTERY DISEASE [None]
  - FEMORAL ARTERIAL STENOSIS [None]
  - MACULAR OEDEMA [None]
  - PERIPHERAL ARTERIAL OCCLUSIVE DISEASE [None]
